FAERS Safety Report 5979468-5 (Version None)
Quarter: 2008Q4

REPORT INFORMATION
  Report Type: 
  Country: None (occurrence: None)
  Receive Date: 20081126
  Receipt Date: 20081117
  Transmission Date: 20090506
  Serious: Yes (Hospitalization)
  Sender: FDA-Public Use
  Company Number: 2008SP023449

PATIENT
  Age: 47 Year
  Sex: Male
  Weight: 78 kg

DRUGS (7)
  1. REBETOL [Suspect]
     Indication: HEPATITIS VIRAL
     Dosage: 800 MG;QD;PO
     Route: 048
     Dates: start: 20001114, end: 20001205
  2. INTRON A [Suspect]
     Indication: HEPATITIS VIRAL
     Dosage: IV
     Route: 042
     Dates: start: 20001114
  3. SUBUTEX [Suspect]
     Indication: DRUG DEPENDENCE
     Dosage: 20 MG; QD; PO
     Route: 048
  4. IBUPROFEN [Suspect]
     Indication: HEADACHE
     Dosage: PO
     Route: 049
     Dates: start: 20001205, end: 20001205
  5. ACETAMINOPHEN [Suspect]
     Indication: DRUG USE FOR UNKNOWN INDICATION
     Dosage: PO
     Route: 048
  6. ANTALVIC (DEXTROPROPOXYPHENE HYDROCHLORIDE) [Suspect]
     Indication: DRUG USE FOR UNKNOWN INDICATION
     Dosage: 65 MG; PO
     Route: 048
  7. FERROUS SULFATE TAB [Suspect]
     Indication: DRUG USE FOR UNKNOWN INDICATION
     Dosage: 80 MG;PO
     Route: 048

REACTIONS (7)
  - FULL BLOOD COUNT DECREASED [None]
  - GENERAL PHYSICAL HEALTH DETERIORATION [None]
  - HAEMOPTYSIS [None]
  - HEADACHE [None]
  - NAUSEA [None]
  - OESOPHAGEAL VARICES HAEMORRHAGE [None]
  - VOMITING [None]
